FAERS Safety Report 7392510-2 (Version None)
Quarter: 2011Q2

REPORT INFORMATION
  Report Type: 
  Country: None (occurrence: None)
  Receive Date: 20110404
  Receipt Date: 20110325
  Transmission Date: 20111010
  Serious: Yes (Other)
  Sender: FDA-Public Use
  Company Number: US-ASTRAZENECA-2000UW00387

PATIENT
  Age: 82 Year
  Sex: Female
  Weight: 61.2 kg

DRUGS (8)
  1. ATACAND [Suspect]
     Route: 048
  2. ATACAND [Suspect]
     Indication: BLOOD PRESSURE
     Route: 048
     Dates: start: 20100901
  3. TENORMIN [Suspect]
     Indication: HYPERTENSION
     Route: 048
     Dates: start: 19990901
  4. ASPIRIN [Concomitant]
     Route: 048
  5. TENORMIN [Suspect]
     Route: 048
  6. VALIUM [Concomitant]
     Indication: ANXIETY
     Route: 048
  7. HYDROCHLOROTHIAZIDE [Concomitant]
     Route: 048
  8. MULTIVITAMIN [Concomitant]

REACTIONS (15)
  - LIBIDO DECREASED [None]
  - DRUG INEFFECTIVE [None]
  - CATARACT [None]
  - GLOMERULAR FILTRATION RATE DECREASED [None]
  - FATIGUE [None]
  - BRADYCARDIA [None]
  - WEIGHT INCREASED [None]
  - BLOOD CHOLESTEROL DECREASED [None]
  - BLOOD POTASSIUM INCREASED [None]
  - HYPOAESTHESIA [None]
  - NEUROPATHY PERIPHERAL [None]
  - NERVOUSNESS [None]
  - BLOOD HOMOCYSTEINE INCREASED [None]
  - TRANSIENT ISCHAEMIC ATTACK [None]
  - COUGH [None]
